FAERS Safety Report 13265768 (Version 1)
Quarter: 2017Q1

REPORT INFORMATION
  Report Type: Spontaneous
  Country: FI (occurrence: FI)
  Receive Date: 20170223
  Receipt Date: 20170223
  Transmission Date: 20170428
  Serious: Yes (Hospitalization, Other)
  Sender: FDA-Public Use
  Company Number: FI-ABBVIE-17P-055-1886021-00

PATIENT
  Age: 57 Year
  Sex: Female

DRUGS (2)
  1. ZOLMITRIPTAN. [Suspect]
     Active Substance: ZOLMITRIPTAN
     Indication: MIGRAINE
     Route: 048
  2. SODIUM VALPROATE [Suspect]
     Active Substance: VALPROATE SODIUM
     Indication: MIGRAINE PROPHYLAXIS
     Route: 065

REACTIONS (3)
  - Myocardial infarction [Unknown]
  - Off label use [Unknown]
  - Arteriospasm coronary [Unknown]
